FAERS Safety Report 6287424-5 (Version None)
Quarter: 2009Q3

REPORT INFORMATION
  Report Type: 
  Country: None (occurrence: None)
  Receive Date: 20090727
  Receipt Date: 20090713
  Transmission Date: 20100115
  Serious: Yes (Other)
  Sender: FDA-Public Use
  Company Number: 2009EN000185

PATIENT
  Age: 40 Year
  Sex: Male

DRUGS (11)
  1. ABELCET [Suspect]
     Indication: FUNGAL INFECTION
     Dosage: 400 MG; QD; IV
     Route: 042
     Dates: start: 20090518, end: 20090518
  2. CLEXANE [Concomitant]
  3. OMEPRAZOLE [Concomitant]
  4. PARACETAMOL [Concomitant]
  5. MORPHINE [Concomitant]
  6. METHADONE HCL [Concomitant]
  7. COMBIVENT [Concomitant]
  8. CIPROFLOXACIN [Concomitant]
  9. MEROPENEM [Concomitant]
  10. ZYVOX [Concomitant]
  11. CHLORPHENIRAMINE MALEATE [Concomitant]

REACTIONS (4)
  - BODY TEMPERATURE INCREASED [None]
  - CHILLS [None]
  - HEART RATE INCREASED [None]
  - HYPERTENSION [None]
